FAERS Safety Report 8389988-4 (Version None)
Quarter: 2012Q2

REPORT INFORMATION
  Report Type: 
  Country: None (occurrence: None)
  Receive Date: 20120529
  Receipt Date: 20120515
  Transmission Date: 20120825
  Serious: Yes (Other)
  Sender: FDA-Public Use
  Company Number: KR-RANBAXY-2012RR-56349

PATIENT
  Age: 29 Year
  Sex: Female

DRUGS (1)
  1. RANITIDINE [Suspect]
     Indication: PRODUCT USED FOR UNKNOWN INDICATION
     Dosage: UNK
     Route: 065

REACTIONS (5)
  - URTICARIA [None]
  - DYSPNOEA [None]
  - HYPOTENSION [None]
  - ANAPHYLACTIC REACTION [None]
  - ANGIOEDEMA [None]
